FAERS Safety Report 14999129 (Version 1)
Quarter: 2018Q2

REPORT INFORMATION
  Report Type: Spontaneous
  Country: DE (occurrence: DE)
  Receive Date: 20180612
  Receipt Date: 20180612
  Transmission Date: 20180711
  Serious: Yes (Hospitalization)
  Sender: FDA-Public Use
  Company Number: DE-TEVA-2018-DE-905076

PATIENT
  Age: 72 Year
  Sex: Female

DRUGS (10)
  1. CLOPIDOGREL [Suspect]
     Active Substance: CLOPIDOGREL BISULFATE
     Dosage: 75 MG, 1-0-0-0
  2. OXYCODON [Concomitant]
     Active Substance: OXYCODONE
     Dosage: 10 MG, 1-0-1-0
  3. LISIBETA COMP [Concomitant]
     Dosage: 20|12.5 MG, 1-0-1-0
  4. SALBUTAMOL [Concomitant]
     Active Substance: ALBUTEROL
     Dosage: 1-1-1-1
     Route: 055
  5. LIORESAL [Concomitant]
     Active Substance: BACLOFEN
     Dosage: 10 MG, NEED
  6. ATROVENT 0,02MG [Concomitant]
     Dosage: 0.02 MG, 1-1-1-1
     Route: 055
  7. PANTOPRAZOL [Concomitant]
     Active Substance: PANTOPRAZOLE SODIUM
     Dosage: 40 MG, 1-0-0-0
  8. METAMIZOL [Concomitant]
     Active Substance: METAMIZOLE SODIUM
     Dosage: 500 MG, NEED
  9. TORASEMID [Concomitant]
     Active Substance: TORSEMIDE
     Dosage: 10 MG, 0.5-0.5-0-0
  10. TRIMIPRAMIN [Concomitant]
     Active Substance: TRIMIPRAMINE MALEATE
     Dosage: 100 MG, NEED

REACTIONS (3)
  - Pain in extremity [Unknown]
  - Arterial occlusive disease [Unknown]
  - Skin ulcer [Unknown]
